FAERS Safety Report 8781410 (Version 2)
Quarter: 2012Q4

REPORT INFORMATION
  Report Type: Report from Study
  Country: FR (occurrence: FR)
  Receive Date: 20120913
  Receipt Date: 20121022
  Transmission Date: 20130627
  Serious: Yes (Hospitalization, Other)
  Sender: FDA-Public Use
  Company Number: FR-PFIZER INC-2012222649

PATIENT
  Age: 25 Year
  Sex: Female

DRUGS (2)
  1. NARDIL [Suspect]
     Dosage: 15 mg, 4 tablets a day
     Dates: start: 201206
  2. LOXAPAC [Suspect]

REACTIONS (9)
  - Oedema [Unknown]
  - Aggression [Unknown]
  - Bulimia nervosa [Unknown]
  - Depersonalisation [Unknown]
  - Depression [Unknown]
  - Nervousness [Unknown]
  - Weight increased [Unknown]
  - Insomnia [Unknown]
  - Agitation [Unknown]
